FAERS Safety Report 10697249 (Version 1)
Quarter: 2015Q1

REPORT INFORMATION
  Report Type: Spontaneous
  Country: US (occurrence: None)
  Receive Date: 20150107
  Receipt Date: 20150107
  Transmission Date: 20150721
  Serious: Yes (Other)
  Sender: FDA-Public Use
  Company Number: None

PATIENT
  Age: 62 Year
  Sex: Female

DRUGS (1)
  1. PALONOSETRON HYDROCHLORIDE [Suspect]
     Active Substance: PALONOSETRON HYDROCHLORIDE
     Indication: ANTIEMETIC SUPPORTIVE CARE
     Dosage: TWO TIMEW ?2WEEK2 M?INTO A VEIN

REACTIONS (7)
  - Hypoaesthesia [None]
  - Hypoaesthesia oral [None]
  - Blood sodium decreased [None]
  - Visual impairment [None]
  - Blood pressure increased [None]
  - Rash erythematous [None]
  - Renal disorder [None]
